FAERS Safety Report 18067950 (Version 2)
Quarter: 2020Q3

REPORT INFORMATION
  Report Type: Spontaneous
  Country: CA (occurrence: CA)
  Receive Date: 20200724
  Receipt Date: 20200728
  Transmission Date: 20201103
  Serious: Yes (Other)
  Sender: FDA-Public Use
  Company Number: CA-PFIZER INC-2019025206

PATIENT
  Age: 64 Year
  Sex: Female

DRUGS (5)
  1. XELJANZ [Suspect]
     Active Substance: TOFACITINIB CITRATE
     Indication: RHEUMATOID ARTHRITIS
     Dosage: 5 MG, 2X/DAY
     Route: 048
     Dates: start: 20190912, end: 2019
  2. PLAQUENIL [Concomitant]
     Active Substance: HYDROXYCHLOROQUINE SULFATE
     Dosage: UNK
  3. XELJANZ [Suspect]
     Active Substance: TOFACITINIB CITRATE
     Dosage: 5 MG, 2X/DAY
     Route: 048
     Dates: start: 2019, end: 2020
  4. IBUPROFEN. [Concomitant]
     Active Substance: IBUPROFEN
     Dosage: UNK
  5. ARAVA [Concomitant]
     Active Substance: LEFLUNOMIDE
     Dosage: UNK

REACTIONS (17)
  - Tooth abscess [Not Recovered/Not Resolved]
  - Lower respiratory tract infection [Unknown]
  - Chills [Not Recovered/Not Resolved]
  - Withdrawal syndrome [Unknown]
  - Inflammation [Unknown]
  - Oral pain [Unknown]
  - Pneumonia [Unknown]
  - Skin infection [Unknown]
  - Tooth infection [Unknown]
  - Oral mucosal erythema [Unknown]
  - Infection [Unknown]
  - Cystitis [Not Recovered/Not Resolved]
  - Palatal disorder [Unknown]
  - Feeling cold [Not Recovered/Not Resolved]
  - Swelling [Unknown]
  - Urinary tract infection [Unknown]
  - Pain [Unknown]

NARRATIVE: CASE EVENT DATE: 2019
